FAERS Safety Report 24551865 (Version 2)
Quarter: 2025Q3

REPORT INFORMATION
  Report Type: Spontaneous
  Country: US (occurrence: US)
  Receive Date: 20241026
  Receipt Date: 20250816
  Transmission Date: 20251020
  Serious: No
  Sender: ALEXION PHARMACEUTICALS
  Company Number: US-AstraZeneca-CH-00728196A

PATIENT
  Age: 82 Year
  Sex: Male

DRUGS (1)
  1. FARXIGA [Suspect]
     Active Substance: DAPAGLIFLOZIN PROPANEDIOL

REACTIONS (5)
  - Renal disorder [Unknown]
  - Cardiac disorder [Unknown]
  - Hypoacusis [Unknown]
  - Memory impairment [Unknown]
  - Cardiac disorder [Unknown]
